FAERS Safety Report 8514900-4 (Version None)
Quarter: 2012Q3

REPORT INFORMATION
  Report Type: 
  Country: None (occurrence: None)
  Receive Date: 20120717
  Receipt Date: 20120710
  Transmission Date: 20120928
  Serious: Yes (Hospitalization, Other)
  Sender: FDA-Public Use
  Company Number: PL-ROCHE-1079682

PATIENT
  Age: 60 Year
  Sex: Female

DRUGS (4)
  1. OXALIPLATIN [Suspect]
     Indication: COLORECTAL CANCER
  2. SULFASALAZINE [Concomitant]
  3. XELODA [Suspect]
     Indication: COLORECTAL CANCER
  4. XELODA [Suspect]
     Dosage: DOSE REDUCED

REACTIONS (3)
  - DIARRHOEA [None]
  - GASTROINTESTINAL TOXICITY [None]
  - INTESTINAL OBSTRUCTION [None]
